FAERS Safety Report 12887349 (Version 1)
Quarter: 2016Q4

REPORT INFORMATION
  Report Type: Report from Study
  Country: US (occurrence: US)
  Receive Date: 20161026
  Receipt Date: 20161026
  Transmission Date: 20170207
  Serious: Yes (Hospitalization)
  Sender: FDA-Public Use
  Company Number: US-JAZZ-2016-US-014582

PATIENT
  Age: 29 Year
  Sex: Male
  Weight: 179 kg

DRUGS (18)
  1. AQUAPHOR OINTMENT [Concomitant]
     Active Substance: ALCOHOL\LIGHT MINERAL OIL\PETROLATUM
     Dosage: APPLY 4 TIMES DAILY, PRN
     Route: 045
     Dates: start: 20140327
  2. CEFEPIME [Concomitant]
     Active Substance: CEFEPIME HYDROCHLORIDE
     Indication: INFECTION PROPHYLAXIS
     Dosage: 4000 MG, UNK
     Route: 042
     Dates: start: 20140330
  3. LIDOCAINE. [Concomitant]
     Active Substance: LIDOCAINE
     Dosage: 3 APPLICATIONS
     Route: 061
     Dates: start: 20140321
  4. FAMOTIDINE. [Concomitant]
     Active Substance: FAMOTIDINE
     Dosage: 20 MG, UNK
     Route: 048
     Dates: start: 20140330
  5. ERYTHROMYCIN BASE [Concomitant]
     Active Substance: ERYTHROMYCIN
     Dosage: 4 APPLICATIONS
     Route: 047
     Dates: start: 20140314
  6. DEFIBROTIDE (INV) [Suspect]
     Active Substance: DEFIBROTIDE SODIUM
     Indication: VENOOCCLUSIVE DISEASE
     Dosage: 1020 MG, (6.25 MG/KG/QD)
     Route: 042
     Dates: start: 20140328, end: 20140502
  7. ARTIFICIAL TEARS [Concomitant]
     Active Substance: GLYCERIN\HYPROMELLOSES\POLYETHYLENE GLYCOL 400
     Dosage: 4 GTT, UNK
     Route: 047
     Dates: start: 20140309
  8. BACITRACIN SAGENT [Concomitant]
     Dosage: 2 APPLICATIONS
     Route: 061
     Dates: start: 20140324
  9. OCEAN MIST [Concomitant]
     Dosage: 4 SPRAYS
     Route: 045
     Dates: start: 20140326
  10. ACYCLOVIR. [Concomitant]
     Active Substance: ACYCLOVIR
     Indication: INFECTION PROPHYLAXIS
     Dosage: 550 MG, UNK
     Route: 042
     Dates: start: 20140328
  11. MICAFUNGIN [Concomitant]
     Active Substance: MICAFUNGIN
     Indication: INFECTION PROPHYLAXIS
     Dosage: 100 MG, UNK
     Route: 042
     Dates: start: 20140325
  12. MYCOPHENOLATE MOFETIL. [Concomitant]
     Active Substance: MYCOPHENOLATE MOFETIL
     Indication: GRAFT VERSUS HOST DISEASE
     Dosage: 2000 MG, UNK
     Route: 042
     Dates: start: 20140328
  13. INSULIN LISPRO [Concomitant]
     Active Substance: INSULIN LISPRO
     Indication: HYPOGLYCAEMIA
     Dosage: 400 U, PRN
     Route: 058
     Dates: start: 20140327
  14. BIOTENE PBF [Concomitant]
     Active Substance: SODIUM FLUORIDE
     Dosage: 6 TIMES / DAY
     Route: 048
     Dates: start: 20140309
  15. CLOTRIMAZOLE. [Concomitant]
     Active Substance: CLOTRIMAZOLE
     Dosage: 50 MG, UNK
     Route: 048
     Dates: start: 20140309
  16. LIDOCAINE AND PRILOCAINE [Concomitant]
     Active Substance: LIDOCAINE\PRILOCAINE
     Dosage: 3 APPLICATIONS
     Route: 061
     Dates: start: 20140321
  17. MUPIROCIN CALCIUM. [Concomitant]
     Active Substance: MUPIROCIN CALCIUM
     Dosage: 3 APPLICATIONS
     Route: 061
     Dates: start: 20140402
  18. URSODIOL. [Concomitant]
     Active Substance: URSODIOL
     Indication: VENOOCCLUSIVE DISEASE
     Dosage: 900 MG, UNK
     Route: 048
     Dates: start: 20140324

REACTIONS (1)
  - Acute kidney injury [Recovered/Resolved with Sequelae]

NARRATIVE: CASE EVENT DATE: 20140402
